FAERS Safety Report 7820014-9 (Version None)
Quarter: 2011Q4

REPORT INFORMATION
  Report Type: 
  Country: None (occurrence: None)
  Receive Date: 20111013
  Receipt Date: 20111004
  Transmission Date: 20120403
  Serious: Yes (Other)
  Sender: FDA-Public Use
  Company Number: GER/UKI/11/0021455

PATIENT
  Age: 26 Year
  Sex: Female

DRUGS (4)
  1. FOLIC ACID [Concomitant]
  2. SERTRALINE HYDROCHLORIDE [Suspect]
     Indication: MENTAL DISORDER
  3. AMITRIPTYLINE HCL [Suspect]
     Indication: MENTAL DISORDER
     Dosage: 125 MG
  4. GABAPENTIN [Suspect]
     Indication: PRODUCT USED FOR UNKNOWN INDICATION

REACTIONS (2)
  - MATERNAL EXPOSURE DURING PREGNANCY [None]
  - PREGNANCY [None]
